FAERS Safety Report 19287006 (Version 1)
Quarter: 2021Q2

REPORT INFORMATION
  Report Type: Spontaneous
  Country: AU (occurrence: AU)
  Receive Date: 20210521
  Receipt Date: 20210521
  Transmission Date: 20210717
  Serious: Yes (Life-Threatening, Hospitalization, Other)
  Sender: FDA-Public Use
  Company Number: AU-MICRO LABS LIMITED-ML2021-01589

PATIENT
  Age: 35 Year
  Sex: Male
  Weight: 142 kg

DRUGS (5)
  1. ESOMEPRAZOLE. [Suspect]
     Active Substance: ESOMEPRAZOLE MAGNESIUM
     Indication: GASTROOESOPHAGEAL REFLUX DISEASE
     Dosage: AT MORNING
  2. CAFFEINE. [Suspect]
     Active Substance: CAFFEINE
     Dosage: CAFFEINE FLUCTUATING BETWEEN 150 AND 450 MG/DAY (BETWEEN TWO AND SIX 250 ML CANS OF RED BULL PER DAY
  3. ATORVASTATIN [Suspect]
     Active Substance: ATORVASTATIN
     Indication: HYPERCHOLESTEROLAEMIA
     Dosage: AT NIGHT
  4. CLOZAPINE. [Suspect]
     Active Substance: CLOZAPINE
     Indication: SCHIZOPHRENIA
     Dosage: AT NIGHT; (STARTED 2 YEARS PRIOR TO THE PRESENTATION
  5. METFORMIN [Concomitant]
     Active Substance: METFORMIN HYDROCHLORIDE
     Dosage: AT NIGHT

REACTIONS (12)
  - Hyperglycaemic hyperosmolar nonketotic syndrome [Recovered/Resolved]
  - Diabetic ketoacidosis [Recovered/Resolved]
  - Tubulointerstitial nephritis [Recovered/Resolved]
  - Inflammatory marker increased [Recovered/Resolved]
  - Septic shock [Recovered/Resolved]
  - Metabolic acidosis [Recovered/Resolved]
  - Drug interaction [Unknown]
  - Toxicity to various agents [Unknown]
  - Multiple organ dysfunction syndrome [Recovered/Resolved]
  - Acute kidney injury [Recovered/Resolved]
  - Acute respiratory failure [Recovered/Resolved]
  - Loss of consciousness [Recovered/Resolved]
